FAERS Safety Report 10231350 (Version 1)
Quarter: 2014Q2

REPORT INFORMATION
  Report Type: Spontaneous
  Country: US (occurrence: None)
  Receive Date: 20140506
  Receipt Date: 20140506
  Transmission Date: 20141212
  Serious: Yes (Other)
  Sender: FDA-Public Use
  Company Number: 1303425

PATIENT
  Age: 68 Year
  Sex: Male

DRUGS (2)
  1. BEVACIZUMAB (BEVACIZUMAB) [Suspect]
     Indication: RENAL CELL CARCINOMA
     Dosage: 1 IN 2 WEEKS
  2. SUNITINIB [Suspect]
     Indication: RENAL CELL CARCINOMA
     Dosage: 4 WEKKS ON AND 2 WEEKS OFF (1 IN TWO WEEKS)

REACTIONS (1)
  - Thrombotic microangiopathy [None]
